FAERS Safety Report 19884494 (Version 1)
Quarter: 2021Q3

REPORT INFORMATION
  Report Type: Spontaneous
  Country: US (occurrence: US)
  Receive Date: 20210923
  Receipt Date: 20210923
  Transmission Date: 20211014
  Serious: No
  Sender: FDA-Public Use
  Company Number: None

PATIENT
  Age: 78 Year
  Sex: Male

DRUGS (1)
  1. CHLORTHALIDONE (CHLORTHALIDONE 25MG TAB) [Suspect]
     Active Substance: CHLORTHALIDONE
     Indication: HYPERTENSION
     Route: 048
     Dates: start: 20210326, end: 20210620

REACTIONS (5)
  - Diarrhoea [None]
  - Hyponatraemia [None]
  - Alcohol use [None]
  - Therapy cessation [None]
  - Hypophagia [None]

NARRATIVE: CASE EVENT DATE: 20210622
